FAERS Safety Report 19849951 (Version 1)
Quarter: 2021Q3

REPORT INFORMATION
  Report Type: Spontaneous
  Country: US (occurrence: US)
  Receive Date: 20210917
  Receipt Date: 20210917
  Transmission Date: 20211014
  Serious: No
  Sender: FDA-Public Use
  Company Number: US-009507513-2108USA003863

PATIENT
  Sex: Female
  Weight: 74.4 kg

DRUGS (7)
  1. ZOFRAN [Concomitant]
     Active Substance: ONDANSETRON HYDROCHLORIDE
     Dosage: 4 MG EVERY 8 HOURS AS NEEDED
  2. LEVOTHYROXINE. [Concomitant]
     Active Substance: LEVOTHYROXINE
     Dosage: 50 MICROGRAM, QD
  3. METHOTREXATE. [Concomitant]
     Active Substance: METHOTREXATE
     Dosage: 2 TABLETS IN THE AM AND 3 TABLETS IN THE EVENING, QW
  4. FOLIC ACID. [Concomitant]
     Active Substance: FOLIC ACID
     Dosage: 2 MILLIGRAM, QD
  5. COMPAZINE [Concomitant]
     Active Substance: PROCHLORPERAZINE MALEATE
     Dosage: 10 MG EVERY 6 HOURS AS NEEDED
  6. SULINDAC. [Concomitant]
     Active Substance: SULINDAC
     Dosage: 200 MILLIGRAM, QD
  7. KEYTRUDA [Suspect]
     Active Substance: PEMBROLIZUMAB
     Indication: NON-SMALL CELL LUNG CANCER STAGE IV
     Dosage: 200 MILLIGRAM
     Route: 042

REACTIONS (2)
  - Product leakage [Unknown]
  - No adverse event [Unknown]
